FAERS Safety Report 5125582-6 (Version None)
Quarter: 2006Q4

REPORT INFORMATION
  Report Type: 
  Country: None (occurrence: None)
  Receive Date: 20061012
  Receipt Date: 20061002
  Transmission Date: 20070319
  Serious: Yes (Other)
  Sender: FDA-Public Use
  Company Number: PHBS2006DE15404

PATIENT
  Age: 63 Year
  Sex: Male

DRUGS (3)
  1. AREDIA [Suspect]
     Indication: PLASMACYTOMA
     Dates: start: 20011101
  2. AREDIA [Suspect]
     Dates: start: 20050101
  3. ZOMETA [Suspect]
     Indication: PLASMACYTOMA
     Dates: start: 20020901

REACTIONS (4)
  - OSTEONECROSIS [None]
  - PRIMARY SEQUESTRUM [None]
  - SEQUESTRECTOMY [None]
  - TOOTH EXTRACTION [None]
